FAERS Safety Report 23574091 (Version 3)
Quarter: 2024Q1

REPORT INFORMATION
  Report Type: Spontaneous
  Country: FR (occurrence: FR)
  Receive Date: 20240228
  Receipt Date: 20240329
  Transmission Date: 20240410
  Serious: Yes (Other)
  Sender: FDA-Public Use
  Company Number: FR-AFSSAPS-PA2024000557

PATIENT
  Age: 28 Year
  Sex: Female

DRUGS (14)
  1. POLYETHYLENE GLYCOL 4000 [Suspect]
     Active Substance: POLYETHYLENE GLYCOL 4000
     Indication: Electroconvulsive therapy
     Dosage: 2 DOSAGE FORM, TWO TIMES A DAY
     Route: 048
     Dates: start: 20240124, end: 20240206
  2. OLANZAPINE [Suspect]
     Active Substance: OLANZAPINE
     Indication: Acute psychosis
     Dosage: 30 MILLIGRAM, ONCE A DAY
     Route: 048
     Dates: start: 20240119, end: 20240121
  3. OLANZAPINE [Suspect]
     Active Substance: OLANZAPINE
     Dosage: 30 MILLIGRAM, ONCE A DAY
     Route: 048
     Dates: start: 20240121, end: 20240206
  4. SUCCINYLCHOLINE [Suspect]
     Active Substance: SUCCINYLCHOLINE
     Indication: Electroconvulsive therapy
     Dosage: 60 MILLIGRAM
     Route: 051
     Dates: start: 20240124, end: 20240124
  5. SUCCINYLCHOLINE [Suspect]
     Active Substance: SUCCINYLCHOLINE
     Dosage: 60 MILLIGRAM
     Route: 051
     Dates: start: 20240126, end: 20240126
  6. SUCCINYLCHOLINE [Suspect]
     Active Substance: SUCCINYLCHOLINE
     Dosage: 60 MILLIGRAM
     Route: 051
     Dates: start: 20240129, end: 20240129
  7. SUCCINYLCHOLINE [Suspect]
     Active Substance: SUCCINYLCHOLINE
     Dosage: 60 MILLIGRAM
     Route: 051
     Dates: start: 20240202, end: 20240202
  8. CHLORPROMAZINE [Suspect]
     Active Substance: CHLORPROMAZINE
     Indication: Acute psychosis
     Dosage: 175 MILLIGRAM, ONCE A DAY
     Route: 048
     Dates: start: 202401, end: 20240206
  9. CHLORPROMAZINE [Suspect]
     Active Substance: CHLORPROMAZINE
     Dosage: 450 MILLIGRAM, ONCE A DAY
     Route: 048
     Dates: start: 202401, end: 20240206
  10. CHLORPROMAZINE [Suspect]
     Active Substance: CHLORPROMAZINE
     Dosage: 450 MILLIGRAM, ONCE A DAY
     Route: 048
     Dates: start: 20240119, end: 20240206
  11. DIPRIVAN [Concomitant]
     Active Substance: ISOPROPYL ALCOHOL\PROPOFOL
     Indication: Electroconvulsive therapy
     Dosage: 60 MILLIGRAM
     Route: 065
     Dates: start: 20240124, end: 20240124
  12. DIPRIVAN [Concomitant]
     Active Substance: ISOPROPYL ALCOHOL\PROPOFOL
     Dosage: 100 MILLIGRAM
     Route: 065
     Dates: start: 20240126, end: 20240126
  13. PROPOFOL [Concomitant]
     Active Substance: PROPOFOL
     Indication: Electroconvulsive therapy
     Dosage: 50 MILLIGRAM
     Route: 065
     Dates: start: 20240129, end: 20240129
  14. PROPOFOL [Concomitant]
     Active Substance: PROPOFOL
     Dosage: 100 MILLIGRAM
     Route: 065
     Dates: start: 20240202, end: 20240202

REACTIONS (2)
  - Toxic skin eruption [Not Recovered/Not Resolved]
  - Product use in unapproved indication [Unknown]

NARRATIVE: CASE EVENT DATE: 20240125
